FAERS Safety Report 9470398 (Version 2)
Quarter: 2013Q3

REPORT INFORMATION
  Report Type: Report from Study
  Country: AR (occurrence: AR)
  Receive Date: 20130822
  Receipt Date: 20130925
  Transmission Date: 20140515
  Serious: Yes (Hospitalization, Other)
  Sender: FDA-Public Use
  Company Number: PHHY2013AR090950

PATIENT
  Sex: Female

DRUGS (1)
  1. DIOVAN [Suspect]
     Indication: BLOOD PRESSURE MANAGEMENT
     Dosage: 1.5 DF (160MG) DAILY
     Route: 048
     Dates: start: 2011, end: 2013

REACTIONS (4)
  - Asthma [Recovered/Resolved with Sequelae]
  - Dyspnoea [Unknown]
  - Bronchial disorder [Recovering/Resolving]
  - Wrong technique in drug usage process [Unknown]
